FAERS Safety Report 12581283 (Version 1)
Quarter: 2016Q3

REPORT INFORMATION
  Report Type: Spontaneous
  Country: US (occurrence: US)
  Receive Date: 20160721
  Receipt Date: 20160721
  Transmission Date: 20161109
  Serious: Yes (Death)
  Sender: FDA-Public Use
  Company Number: US-ACTELION-A-US2016-139385

PATIENT
  Age: 84 Year
  Sex: Female

DRUGS (11)
  1. TRACLEER [Suspect]
     Active Substance: BOSENTAN
     Indication: PULMONARY ARTERIAL HYPERTENSION
     Dosage: 125 MG, BID
     Route: 048
     Dates: start: 20030618, end: 20160710
  2. LORAZEPAM. [Concomitant]
     Active Substance: LORAZEPAM
  3. CARDIZEM [Concomitant]
     Active Substance: DILTIAZEM HYDROCHLORIDE
  4. METOPROLOL. [Concomitant]
     Active Substance: METOPROLOL
  5. ASPIRIN. [Concomitant]
     Active Substance: ASPIRIN
  6. LASIX [Concomitant]
     Active Substance: FUROSEMIDE
  7. OSCAL [Concomitant]
     Active Substance: CALCIUM CARBONATE
  8. DIGOXIN. [Concomitant]
     Active Substance: DIGOXIN
  9. VITAMIN D [Concomitant]
     Active Substance: CHOLECALCIFEROL
  10. VITAMIN B [Concomitant]
     Active Substance: VITAMIN B
  11. POTASSIUM [Concomitant]
     Active Substance: POTASSIUM

REACTIONS (1)
  - Death [Fatal]

NARRATIVE: CASE EVENT DATE: 20160711
